FAERS Safety Report 7734125-X (Version None)
Quarter: 2011Q3

REPORT INFORMATION
  Report Type: 
  Country: None (occurrence: None)
  Receive Date: 20110907
  Receipt Date: 20110825
  Transmission Date: 20111222
  Serious: Yes (Other)
  Sender: FDA-Public Use
  Company Number: US-ROCHE-800684

PATIENT
  Age: 75 Year

DRUGS (1)
  1. BEVACIZUMAB [Suspect]
     Indication: CHOROIDAL NEOVASCULARISATION
     Dosage: RECEIVED THREE INJECTIONS.
     Route: 065

REACTIONS (1)
  - EYE INFECTION TOXOPLASMAL [None]
